FAERS Safety Report 16014250 (Version 1)
Quarter: 2019Q1

REPORT INFORMATION
  Report Type: Spontaneous
  Country: GB (occurrence: GB)
  Receive Date: 20190227
  Receipt Date: 20190227
  Transmission Date: 20190418
  Serious: Yes (Other)
  Sender: FDA-Public Use
  Company Number: GB-TEVA-2019-GB-1017052

PATIENT
  Age: 25 Year
  Sex: Female

DRUGS (1)
  1. METOCLOPRAMIDE. [Suspect]
     Active Substance: METOCLOPRAMIDE
     Indication: NAUSEA
     Route: 048

REACTIONS (4)
  - Trismus [Unknown]
  - Dyskinesia [Unknown]
  - Muscle spasms [Recovered/Resolved]
  - Eye movement disorder [Unknown]
